FAERS Safety Report 25003551 (Version 2)
Quarter: 2025Q1

REPORT INFORMATION
  Report Type: Spontaneous
  Country: BE (occurrence: BE)
  Receive Date: 20250224
  Receipt Date: 20250224
  Transmission Date: 20250408
  Serious: Yes (Other)
  Sender: AUROBINDO
  Company Number: BE-FAMHP-DHH-N2025-123770

PATIENT
  Sex: Male
  Weight: 66 kg

DRUGS (2)
  1. ACETAMINOPHEN [Suspect]
     Active Substance: ACETAMINOPHEN
     Indication: Pain in extremity
     Dosage: 6 DOSAGE FORM, ONCE A DAY (6.00 PILLS, ONCE)
     Route: 048
  2. TRAMADOL HYDROCHLORIDE [Suspect]
     Active Substance: TRAMADOL HYDROCHLORIDE
     Indication: Pain in extremity
     Route: 048

REACTIONS (4)
  - Nausea [Not Recovered/Not Resolved]
  - Vertigo [Not Recovered/Not Resolved]
  - Accidental overdose [Not Recovered/Not Resolved]
  - Product use issue [Not Recovered/Not Resolved]
